FAERS Safety Report 19484749 (Version 1)
Quarter: 2021Q3

REPORT INFORMATION
  Report Type: Report from Study
  Country: MX (occurrence: MX)
  Receive Date: 20210701
  Receipt Date: 20210701
  Transmission Date: 20211014
  Serious: Yes (Death, Other)
  Sender: FDA-Public Use
  Company Number: MX-SEATTLE GENETICS-2021SGN02387

PATIENT
  Age: 27 Year
  Sex: Male
  Weight: 47 kg

DRUGS (1)
  1. BRENTUXIMAB VEDOTIN [Suspect]
     Active Substance: BRENTUXIMAB VEDOTIN
     Indication: HODGKIN^S DISEASE
     Dosage: 88.2 MILLIGRAM
     Route: 042
     Dates: start: 20210409, end: 20210628

REACTIONS (5)
  - Weight decreased [Unknown]
  - Death [Fatal]
  - Neoplasm [Unknown]
  - Anaemia [Unknown]
  - Rash [Unknown]

NARRATIVE: CASE EVENT DATE: 20210627
